FAERS Safety Report 14567583 (Version 2)
Quarter: 2018Q3

REPORT INFORMATION
  Report Type: Spontaneous
  Country: PT (occurrence: PT)
  Receive Date: 20180223
  Receipt Date: 20180723
  Transmission Date: 20181010
  Serious: Yes (Disabling)
  Sender: FDA-Public Use
  Company Number: PT-MYLANLABS-2018M1011871

PATIENT
  Age: 88 Year
  Sex: Male

DRUGS (1)
  1. ATORVASTATIN [Suspect]
     Active Substance: ATORVASTATIN
     Indication: CAROTID ARTERIOSCLEROSIS
     Dosage: 20 MG, QD
     Route: 048
     Dates: start: 20180102, end: 20180123

REACTIONS (10)
  - Pulse abnormal [Unknown]
  - Eyelid oedema [Unknown]
  - Chest pain [Unknown]
  - Movement disorder [Unknown]
  - Dyspnoea [Unknown]
  - Asthenia [Unknown]
  - Anxiety [Unknown]
  - Blood pressure increased [Unknown]
  - Nightmare [Unknown]
  - Insomnia [Unknown]

NARRATIVE: CASE EVENT DATE: 20180120
